FAERS Safety Report 9860156 (Version 1)
Quarter: 2014Q1

REPORT INFORMATION
  Report Type: Spontaneous
  Country: JP (occurrence: JP)
  Receive Date: 20140201
  Receipt Date: 20140201
  Transmission Date: 20141002
  Serious: Yes (Death, Hospitalization, Other)
  Sender: FDA-Public Use
  Company Number: JP-ACCORD-021493

PATIENT
  Age: 70 Year
  Sex: Male

DRUGS (6)
  1. IRINOTECAN [Suspect]
     Indication: COLON CANCER METASTATIC
  2. FLUOROURACIL [Suspect]
     Indication: COLON CANCER METASTATIC
     Dosage: 400 MG/M2 ON DAY 1, FOLLOWED BY A CONTINUOUS 5-FU, 2,400 MG/M2,AT 46 HOURS, REPEATED EVERY 2 WEEKS
     Route: 042
  3. LEVOFOLINATE [Suspect]
     Indication: COLON CANCER METASTATIC
     Route: 042
  4. OXALIPLATIN [Suspect]
     Indication: COLON CANCER METASTATIC
  5. BEVACIZUMAB [Concomitant]
     Indication: COLON CANCER METASTATIC
     Route: 042
  6. TS-1 [Concomitant]
     Indication: COLON CANCER METASTATIC
     Route: 048

REACTIONS (2)
  - Pulmonary oedema [Fatal]
  - Drug ineffective [Unknown]
